FAERS Safety Report 7705328-5 (Version None)
Quarter: 2011Q3

REPORT INFORMATION
  Report Type: 
  Country: None (occurrence: None)
  Receive Date: 20110824
  Receipt Date: 20110810
  Transmission Date: 20111222
  Serious: Yes (Other)
  Sender: FDA-Public Use
  Company Number: JP-UCBSA-032510

PATIENT
  Age: 27 Year
  Sex: Female

DRUGS (2)
  1. KEPPRA [Suspect]
     Indication: EPILEPSY
     Route: 048
  2. PHENYTOIN SODIUM CAP [Concomitant]

REACTIONS (1)
  - GINGIVAL HYPERPLASIA [None]
